FAERS Safety Report 21050970 (Version 1)
Quarter: 2022Q3

REPORT INFORMATION
  Report Type: Spontaneous
  Country: CN (occurrence: CN)
  Receive Date: 20220707
  Receipt Date: 20220707
  Transmission Date: 20221027
  Serious: Yes (Other)
  Sender: FDA-Public Use
  Company Number: CN-ORGANON-O2207CHN000100

PATIENT
  Age: 70 Year
  Sex: Male

DRUGS (2)
  1. ZOCOR [Suspect]
     Active Substance: SIMVASTATIN
     Indication: Lipid metabolism disorder
     Dosage: 20 MG, QD
     Route: 048
     Dates: start: 20220618, end: 20220626
  2. ZOCOR [Suspect]
     Active Substance: SIMVASTATIN
     Indication: Angiopathy

REACTIONS (1)
  - Drug-induced liver injury [Unknown]

NARRATIVE: CASE EVENT DATE: 20220618
